FAERS Safety Report 6399582-2 (Version None)
Quarter: 2009Q4

REPORT INFORMATION
  Report Type: 
  Country: None (occurrence: None)
  Receive Date: 20091014
  Receipt Date: 20091005
  Transmission Date: 20100525
  Serious: Yes (Other)
  Sender: FDA-Public Use
  Company Number: US-AVENTIS-200918919US

PATIENT
  Sex: Female
  Weight: 131.36 kg

DRUGS (8)
  1. LOVENOX [Suspect]
     Indication: FACTOR V LEIDEN MUTATION
     Dates: start: 20081201
  2. LOVENOX [Suspect]
     Dates: end: 20090901
  3. LOVENOX [Suspect]
     Indication: COAGULATION FACTOR VIII LEVEL DECREASED
     Dates: start: 20081201
  4. LOVENOX [Suspect]
     Dates: end: 20090901
  5. LOVENOX [Suspect]
     Indication: PULMONARY EMBOLISM
     Dates: start: 20081201
  6. LOVENOX [Suspect]
     Dates: end: 20090901
  7. COUMADIN [Suspect]
     Dosage: DOSE: UNK
     Dates: start: 20081201
  8. PRENATAL VITAMINS                  /01549301/ [Concomitant]
     Dosage: DOSE: UNK

REACTIONS (6)
  - DRUG DOSE OMISSION [None]
  - DRUG INEFFECTIVE [None]
  - INFERTILITY FEMALE [None]
  - INJECTION SITE HAEMATOMA [None]
  - PULMONARY EMBOLISM [None]
  - SKIN WARM [None]
